FAERS Safety Report 6124349-X (Version None)
Quarter: 2009Q1

REPORT INFORMATION
  Report Type: 
  Country: None (occurrence: None)
  Receive Date: 20090318
  Receipt Date: 20090318
  Transmission Date: 20090719
  Serious: No
  Sender: FDA-Public Use
  Company Number: None

PATIENT
  Age: 56 Year
  Sex: Male
  Weight: 63.5036 kg

DRUGS (1)
  1. CHOLESTYRAMINE [Suspect]
     Dosage: 1 TAB TWICE PO
     Route: 048
     Dates: start: 20080519, end: 20081001

REACTIONS (1)
  - ABDOMINAL DISCOMFORT [None]
